FAERS Safety Report 6188398-8 (Version None)
Quarter: 2009Q2

REPORT INFORMATION
  Report Type: 
  Country: None (occurrence: None)
  Receive Date: 20090513
  Receipt Date: 20090501
  Transmission Date: 20091009
  Serious: Yes (Other)
  Sender: FDA-Public Use
  Company Number: ES-JNJFOC-20090202682

PATIENT
  Age: 55 Year
  Sex: Male

DRUGS (3)
  1. INFLIXIMAB [Suspect]
     Indication: ARTHRITIS
     Route: 042
  2. METHOTREXATE [Concomitant]
  3. CORTICOSTEROIDS [Concomitant]

REACTIONS (1)
  - VISCERAL LEISHMANIASIS [None]
